FAERS Safety Report 8844439 (Version 1)
Quarter: 2012Q4

REPORT INFORMATION
  Report Type: 
  Country: DE (occurrence: DE)
  Receive Date: 20121017
  Receipt Date: 20121017
  Transmission Date: 20130627
  Serious: Yes (Other)
  Sender: FDA-Public Use
  Company Number: DE-SANOFI-AVENTIS-2012SA075449

PATIENT
  Sex: Male
  Weight: 3.08 kg

DRUGS (5)
  1. QUENSYL [Suspect]
     Indication: CREST SYNDROME
     Dosage: 200 [mg/d ]
     Route: 064
     Dates: start: 20110721, end: 20120420
  2. PREDNISOLON [Concomitant]
     Indication: CREST SYNDROME
     Dosage: 5 [mg/d ]
     Route: 064
     Dates: start: 20110721, end: 20120420
  3. ACETYLSALICYLSAEURE [Concomitant]
     Indication: FACTOR V LEIDEN MUTATION
     Dosage: 100 [mg/d ]
     Route: 064
     Dates: start: 20110906, end: 20120420
  4. FRAGMIN P [Concomitant]
     Indication: FACTOR V LEIDEN MUTATION
     Route: 064
     Dates: start: 20110906, end: 20120420
  5. FOLIC ACID [Concomitant]
     Indication: PROPHYLAXIS OF NEURAL TUBE DEFECT
     Dosage: 0.8 [mg/d ]
     Route: 064
     Dates: start: 20110906

REACTIONS (3)
  - Foetal arrhythmia [Recovered/Resolved]
  - Exposure during pregnancy [Recovered/Resolved]
  - Tachycardia foetal [Recovered/Resolved]
